FAERS Safety Report 23289816 (Version 1)
Quarter: 2023Q4

REPORT INFORMATION
  Report Type: Spontaneous
  Country: US (occurrence: US)
  Receive Date: 20231212
  Receipt Date: 20231212
  Transmission Date: 20240110
  Serious: No
  Sender: FDA-Public Use
  Company Number: US-PFIZER INC-202300430481

PATIENT
  Age: 75 Year
  Sex: Male
  Weight: 107.95 kg

DRUGS (2)
  1. PAXLOVID [Suspect]
     Active Substance: NIRMATRELVIR\RITONAVIR
     Indication: COVID-19 treatment
     Dosage: UNK
     Dates: start: 20231115, end: 20231119
  2. KEFLEX [Concomitant]
     Active Substance: CEPHALEXIN
     Indication: Skin infection
     Dosage: 500 MILLIGRAMS FOUR TIMES A DAY FOR 7 DAYS

REACTIONS (9)
  - COVID-19 [Unknown]
  - Disease recurrence [Unknown]
  - Headache [Unknown]
  - Pyrexia [Unknown]
  - Cough [Unknown]
  - Pain [Unknown]
  - Myalgia [Unknown]
  - Vomiting [Unknown]
  - Diarrhoea [Unknown]

NARRATIVE: CASE EVENT DATE: 20231101
